FAERS Safety Report 13900043 (Version 2)
Quarter: 2017Q3

REPORT INFORMATION
  Report Type: Report from Study
  Country: AR (occurrence: AR)
  Receive Date: 20170823
  Receipt Date: 20170920
  Transmission Date: 20171127
  Serious: Yes (Other)
  Sender: FDA-Public Use
  Company Number: PHHY2017AR123979

PATIENT
  Age: 76 Year
  Sex: Male

DRUGS (1)
  1. AZARGA [Suspect]
     Active Substance: BRINZOLAMIDE\TIMOLOL MALEATE
     Indication: GLAUCOMA
     Dosage: 2 GTT, QD (1 DROP IN THE MORNING, ONE DROP AT NIGHT ON HIS LEFT EYE)
     Route: 065
     Dates: end: 20170913

REACTIONS (6)
  - Benign prostatic hyperplasia [Unknown]
  - Intraocular pressure decreased [Unknown]
  - Gastric ulcer [Unknown]
  - Gastrooesophageal reflux disease [Unknown]
  - Cataract [Recovered/Resolved]
  - Ocular hyperaemia [Recovered/Resolved]

NARRATIVE: CASE EVENT DATE: 20170913
